FAERS Safety Report 5123439-8 (Version None)
Quarter: 2006Q4

REPORT INFORMATION
  Report Type: 
  Country: None (occurrence: None)
  Receive Date: 20061005
  Receipt Date: 20060809
  Transmission Date: 20070319
  Serious: Yes (Hospitalization, Other)
  Sender: FDA-Public Use
  Company Number: 2006115589

PATIENT
  Age: 54 Year
  Sex: Female

DRUGS (8)
  1. ZYRTEC [Suspect]
     Indication: URTICARIA
     Dosage: ORAL
     Route: 048
  2. CLINDAMYCIN HYDROCHLORIDE [Suspect]
  3. ATARAX [Suspect]
     Indication: URTICARIA
  4. CLARITHROMYCIN [Suspect]
  5. NIPOLAZIN (MEQUITAZINE) [Concomitant]
  6. POLARAMINE [Concomitant]
  7. DAREN (CEFAZOLIN SODIUM, CEFAZOLINE BENZATHINE) [Concomitant]
  8. CELTECT (OXATOMIDE) [Concomitant]

REACTIONS (3)
  - LYMPHOCYTE STIMULATION TEST POSITIVE [None]
  - PSEUDOMONAL SEPSIS [None]
  - TOXIC EPIDERMAL NECROLYSIS [None]
